FAERS Safety Report 8176376-9 (Version None)
Quarter: 2012Q1

REPORT INFORMATION
  Report Type: 
  Country: None (occurrence: None)
  Receive Date: 20120301
  Receipt Date: 20120222
  Transmission Date: 20120608
  Serious: Yes (Other)
  Sender: FDA-Public Use
  Company Number: US-SANOFI-AVENTIS-2012SA012435

PATIENT
  Age: 68 Year
  Sex: Female

DRUGS (1)
  1. DRISDOL [Suspect]
     Indication: VITAMIN D DECREASED
     Dates: start: 20111001, end: 20111201

REACTIONS (16)
  - ILL-DEFINED DISORDER [None]
  - ANXIETY [None]
  - DIARRHOEA [None]
  - HYPOAESTHESIA [None]
  - NASAL DRYNESS [None]
  - SINUS DISORDER [None]
  - DRY EYE [None]
  - THIRST [None]
  - ASTIGMATISM [None]
  - GASTROINTESTINAL DISORDER [None]
  - INSOMNIA [None]
  - ARTHRITIS [None]
  - MENTAL STATUS CHANGES [None]
  - DEPRESSED MOOD [None]
  - VISUAL IMPAIRMENT [None]
  - RHINALGIA [None]
